FAERS Safety Report 6665303-9 (Version None)
Quarter: 2010Q2

REPORT INFORMATION
  Report Type: 
  Country: None (occurrence: None)
  Receive Date: 20100402
  Receipt Date: 20100322
  Transmission Date: 20101027
  Serious: Yes (Death, Hospitalization)
  Sender: FDA-Public Use
  Company Number: US-JNJFOC-20091203321

PATIENT
  Sex: Male
  Weight: 85.28 kg

DRUGS (3)
  1. REMICADE [Suspect]
     Indication: ANKYLOSING SPONDYLITIS
     Route: 042
  2. REMICADE [Suspect]
     Dosage: NOTED TO BE ON INFLIXIMAB GREATER THAN 6 MONTHS
     Route: 042
  3. METHOTREXATE [Concomitant]

REACTIONS (5)
  - DEATH [None]
  - DISSEMINATED INTRAVASCULAR COAGULATION [None]
  - DYSPNOEA [None]
  - MULTI-ORGAN FAILURE [None]
  - PYREXIA [None]
